FAERS Safety Report 9245796 (Version 2)
Quarter: 2013Q2

REPORT INFORMATION
  Report Type: Spontaneous
  Country: BR (occurrence: BR)
  Receive Date: 20130422
  Receipt Date: 20130502
  Transmission Date: 20140414
  Serious: Yes (Other)
  Sender: FDA-Public Use
  Company Number: BR-ROCHE-1215723

PATIENT
  Age: 26 Year
  Sex: Female
  Weight: 50 kg

DRUGS (2)
  1. ROACUTAN [Suspect]
     Indication: PRODUCT USED FOR UNKNOWN INDICATION
     Route: 065
     Dates: start: 20130128, end: 20130410
  2. ROACUTAN [Suspect]
     Route: 065
     Dates: start: 20130421

REACTIONS (4)
  - Pregnancy [Unknown]
  - Abortion [Recovered/Resolved]
  - Lip dry [Recovered/Resolved]
  - Liver disorder [Recovered/Resolved]
